FAERS Safety Report 26217202 (Version 1)
Quarter: 2025Q4

REPORT INFORMATION
  Report Type: Report from Study
  Country: IL (occurrence: IL)
  Receive Date: 20251231
  Receipt Date: 20251231
  Transmission Date: 20260117
  Serious: Yes (Other)
  Sender: ABBVIE
  Company Number: IL-ABBVIE-6610040

PATIENT
  Age: 64 Year
  Sex: Female

DRUGS (3)
  1. FOSCARBIDOPA\FOSLEVODOPA [Suspect]
     Active Substance: FOSCARBIDOPA\FOSLEVODOPA
     Indication: Parkinson^s disease
     Dosage: LD:0.70ML; BIR:0.30(ML/H); HIR:0.33(ML/H); LIR: 0.26(ML/H); ED:0.15ML; ?THERAPY DURATION: REMAINS...
     Route: 058
     Dates: start: 2025, end: 2025
  2. FOSCARBIDOPA\FOSLEVODOPA [Suspect]
     Active Substance: FOSCARBIDOPA\FOSLEVODOPA
     Dosage: LD:0.70ML; BIR:0.30(ML/H); HIR:0.32(ML/H); LIR: 0.24(ML/H); ED:0.15ML; ?THERAPY DURATION: REMAINS...
     Route: 058
     Dates: start: 2025
  3. FOSCARBIDOPA\FOSLEVODOPA [Suspect]
     Active Substance: FOSCARBIDOPA\FOSLEVODOPA
     Dosage: LD:0.70ML; BIR:0.33(ML/H); HIR:0.36(ML/H); LIR: 0.26(ML/H); ED:0.15ML; ?THERAPY DURATION: REMAINS...
     Route: 058
     Dates: start: 20250217, end: 2025

REACTIONS (3)
  - Hip fracture [Recovering/Resolving]
  - Arthralgia [Unknown]
  - Fall [Unknown]

NARRATIVE: CASE EVENT DATE: 20250101
